FAERS Safety Report 14171484 (Version 1)
Quarter: 2017Q4

REPORT INFORMATION
  Report Type: Spontaneous
  Country: US (occurrence: US)
  Receive Date: 20171108
  Receipt Date: 20171108
  Transmission Date: 20180321
  Serious: Yes (Other)
  Sender: FDA-Public Use
  Company Number: US-LANNETT COMPANY, INC.-US-2017LAN001175

PATIENT

DRUGS (3)
  1. COCAINE [Suspect]
     Active Substance: COCAINE
     Indication: ANAESTHESIA
     Dosage: UNK
  2. LIDOCAINE. [Suspect]
     Active Substance: LIDOCAINE
     Indication: NASAL OPERATION
     Dosage: UNK
  3. EPINEPHRINE. [Suspect]
     Active Substance: EPINEPHRINE
     Indication: NASAL OPERATION
     Dosage: UNK

REACTIONS (1)
  - Myocardial infarction [Unknown]
